FAERS Safety Report 7819413-0 (Version None)
Quarter: 2011Q4

REPORT INFORMATION
  Report Type: 
  Country: None (occurrence: None)
  Receive Date: 20111018
  Receipt Date: 20101020
  Transmission Date: 20120403
  Serious: No
  Sender: FDA-Public Use
  Company Number: US-ASTRAZENECA-2010SE49634

PATIENT
  Age: 67 Year
  Sex: Female

DRUGS (7)
  1. SYMBICORT [Suspect]
     Dosage: 160 MCG
     Route: 055
  2. VERAMIST [Concomitant]
  3. CALCIUM CARBONATE [Concomitant]
  4. MULTIVITS [Concomitant]
  5. PROTONIX [Concomitant]
  6. VENTOLIN [Concomitant]
  7. LEVOTHYROXINE SODIUM [Concomitant]

REACTIONS (2)
  - HYPERSENSITIVITY [None]
  - DYSPNOEA [None]
